FAERS Safety Report 9618059 (Version 3)
Quarter: 2016Q2

REPORT INFORMATION
  Report Type: Spontaneous
  Country: FI (occurrence: FI)
  Receive Date: 20131012
  Receipt Date: 20160520
  Transmission Date: 20160815
  Serious: Yes (Death, Disabling, Other)
  Sender: FDA-Public Use
  Company Number: FI-AMGEN-FINSP2013070371

PATIENT
  Age: 65 Year
  Sex: Male

DRUGS (5)
  1. TAMSUMIN [Concomitant]
     Active Substance: TAMSULOSIN
     Dosage: UNK
     Route: 048
  2. CALCICHEW D3 FORTE [Concomitant]
     Active Substance: CALCIUM\CHOLECALCIFEROL
     Dosage: 500 MG /10MCG, UNK
     Route: 048
  3. BURANA [Concomitant]
     Active Substance: IBUPROFEN
     Dosage: 800 MG, UNK
     Route: 048
  4. OPAMOX [Concomitant]
     Dosage: 15 MG, UNK
     Route: 048
  5. XGEVA [Suspect]
     Active Substance: DENOSUMAB
     Indication: PROSTATE CANCER
     Dosage: 120 MG, QMO
     Route: 058
     Dates: start: 20121121, end: 20130702

REACTIONS (3)
  - Death [Fatal]
  - Mucous membrane disorder [Unknown]
  - Osteonecrosis of jaw [Not Recovered/Not Resolved]

NARRATIVE: CASE EVENT DATE: 20130702
